FAERS Safety Report 10565515 (Version 2)
Quarter: 2014Q4

REPORT INFORMATION
  Report Type: Spontaneous
  Country: US (occurrence: US)
  Receive Date: 20141105
  Receipt Date: 20141201
  Transmission Date: 20150529
  Serious: No
  Sender: FDA-Public Use
  Company Number: US-PFIZER INC-2014304122

PATIENT
  Age: 84 Year
  Sex: Female

DRUGS (11)
  1. VITAMIN D [Concomitant]
     Active Substance: CHOLECALCIFEROL
     Dosage: 50,000, CAPSULE A HALF HOUR BEFORE EATING ONCE PER WEEK
     Route: 048
  2. ADVAIR HFA [Concomitant]
     Active Substance: FLUTICASONE PROPIONATE\SALMETEROL XINAFOATE
     Indication: DYSPNOEA
  3. ZOLPIDEM [Concomitant]
     Active Substance: ZOLPIDEM\ZOLPIDEM TARTRATE
     Dosage: 10
     Dates: start: 2009
  4. LYRICA [Suspect]
     Active Substance: PREGABALIN
     Indication: FIBROMYALGIA
  5. AMBIEN [Suspect]
     Active Substance: ZOLPIDEM TARTRATE
     Indication: SLEEP DISORDER
     Dosage: 10 MG, ONCE PER NIGHT
     Route: 048
  6. AMLODIPINE [Concomitant]
     Active Substance: AMLODIPINE BESYLATE
     Indication: BLOOD PRESSURE MANAGEMENT
     Dosage: 5 MG, 1X/DAY EVERY MORNING
     Route: 048
  7. HYDROCODONE [Concomitant]
     Active Substance: HYDROCODONE
     Indication: PAIN
     Dosage: 5-325 UNITS UNKNOWN
     Dates: start: 2009
  8. LYRICA [Suspect]
     Active Substance: PREGABALIN
     Indication: NEUROPATHY PERIPHERAL
     Dosage: 1 CAPSULE 50MG, BY MOUTH THREE TIMES A DAY AS TOLERATED (TAKING ONE PER NIGHT )
     Route: 048
     Dates: start: 201410
  9. TRAMADOL [Concomitant]
     Active Substance: TRAMADOL
     Indication: MUSCLE SPASMS
     Dosage: 50 MG, AS NEEDED
     Route: 048
     Dates: start: 2009
  10. ALENDRONATE [Concomitant]
     Active Substance: ALENDRONATE SODIUM
     Indication: BONE DISORDER
     Dosage: 70 MG, UNK
     Route: 048
  11. LEVOTHYROXINE [Concomitant]
     Active Substance: LEVOTHYROXINE
     Indication: THYROID DISORDER
     Dosage: 25MCG TABLET, 1X/DAY EVERY MORNING
     Route: 048
     Dates: start: 2009

REACTIONS (13)
  - Constipation [Not Recovered/Not Resolved]
  - Asthenia [Unknown]
  - Burning sensation [Unknown]
  - Pain in extremity [Recovering/Resolving]
  - Pain [Not Recovered/Not Resolved]
  - Weight increased [Not Recovered/Not Resolved]
  - Chills [Not Recovered/Not Resolved]
  - Dyspnoea [Not Recovered/Not Resolved]
  - Malaise [Unknown]
  - Insomnia [Not Recovered/Not Resolved]
  - Arthropathy [Unknown]
  - Nervousness [Recovering/Resolving]
  - Drug ineffective [Unknown]

NARRATIVE: CASE EVENT DATE: 2014
